FAERS Safety Report 11036829 (Version 2)
Quarter: 2015Q3

REPORT INFORMATION
  Report Type: Spontaneous
  Country: CA (occurrence: CA)
  Receive Date: 20150416
  Receipt Date: 20150810
  Transmission Date: 20151125
  Serious: Yes (Death)
  Sender: FDA-Public Use
  Company Number: CA-ROCHE-1564001

PATIENT
  Age: 68 Year
  Sex: Male

DRUGS (10)
  1. RITUXAN [Suspect]
     Active Substance: RITUXIMAB
     Indication: MANTLE CELL LYMPHOMA
     Dosage: FREQUENCY: CYCLICAL
     Route: 042
  2. TREANDA [Suspect]
     Active Substance: BENDAMUSTINE HYDROCHLORIDE
     Indication: MANTLE CELL LYMPHOMA
     Route: 042
  3. PREDNISONE. [Concomitant]
     Active Substance: PREDNISONE
  4. ATORVASTATIN CALCIUM. [Concomitant]
     Active Substance: ATORVASTATIN CALCIUM
  5. BISOPROLOL [Concomitant]
     Active Substance: BISOPROLOL
  6. ASPIRIN. [Concomitant]
     Active Substance: ASPIRIN
  7. RITUXAN [Suspect]
     Active Substance: RITUXIMAB
     Dosage: FREQUENCY: CYCLICAL
     Route: 042
  8. TREANDA [Suspect]
     Active Substance: BENDAMUSTINE HYDROCHLORIDE
     Route: 042
  9. RAMIPRIL. [Concomitant]
     Active Substance: RAMIPRIL
  10. VENTOLIN [Concomitant]
     Active Substance: ALBUTEROL SULFATE

REACTIONS (2)
  - Dyspnoea [Fatal]
  - Lymphoma [Fatal]
